FAERS Safety Report 14957313 (Version 2)
Quarter: 2018Q2

REPORT INFORMATION
  Report Type: Report from Study
  Country: US (occurrence: US)
  Receive Date: 20180531
  Receipt Date: 20180621
  Transmission Date: 20180711
  Serious: Yes (Death, Hospitalization, Other)
  Sender: FDA-Public Use
  Company Number: US-MYLANLABS-2018M1037415

PATIENT
  Sex: Female
  Weight: 74.83 kg

DRUGS (1)
  1. CLOZAPINE. [Suspect]
     Active Substance: CLOZAPINE
     Indication: PRODUCT USED FOR UNKNOWN INDICATION
     Dosage: UNK

REACTIONS (5)
  - Influenza [Unknown]
  - Neoplasm progression [Fatal]
  - Coma [Unknown]
  - Skin infection [Fatal]
  - T-cell lymphoma [Fatal]

NARRATIVE: CASE EVENT DATE: 2018
